FAERS Safety Report 6193194-1 (Version None)
Quarter: 2009Q2

REPORT INFORMATION
  Report Type: 
  Country: None (occurrence: None)
  Receive Date: 20090518
  Receipt Date: 20090508
  Transmission Date: 20091009
  Serious: Yes (Hospitalization)
  Sender: FDA-Public Use
  Company Number: A0772371A

PATIENT
  Age: 74 Year
  Sex: Male
  Weight: 99.1 kg

DRUGS (6)
  1. AVANDIA [Suspect]
     Dosage: 4MG PER DAY
     Route: 065
     Dates: start: 20000401, end: 20071001
  2. GLYSET [Concomitant]
     Dates: start: 20010101
  3. INSULIN [Concomitant]
     Dates: start: 20040101
  4. LIPITOR [Concomitant]
     Dates: start: 20040101
  5. GLUCOTROL [Concomitant]
  6. GLUCOPHAGE [Concomitant]

REACTIONS (2)
  - IMPAIRED WORK ABILITY [None]
  - MYOCARDIAL ISCHAEMIA [None]
